FAERS Safety Report 4711300-X (Version None)
Quarter: 2005Q3

REPORT INFORMATION
  Report Type: 
  Country: None (occurrence: None)
  Receive Date: 20050711
  Receipt Date: 20050620
  Transmission Date: 20060218
  Serious: Yes (Other)
  Sender: FDA-Public Use
  Company Number: 05-04-0596

PATIENT
  Age: 47 Year
  Sex: Female

DRUGS (5)
  1. CLOZAPINE [Suspect]
     Indication: AGORAPHOBIA
     Dosage: 600MG QD ORAL
     Route: 048
     Dates: start: 20040701
  2. CHEMOTHERAPY [Suspect]
     Indication: NEOPLASM MALIGNANT
  3. LITHIUM [Concomitant]
  4. LEXAPRO [Concomitant]
  5. XANAX [Concomitant]

REACTIONS (2)
  - NEOPLASM MALIGNANT [None]
  - WHITE BLOOD CELL COUNT DECREASED [None]
